FAERS Safety Report 12178053 (Version 1)
Quarter: 2016Q1

REPORT INFORMATION
  Report Type: Spontaneous
  Country: BR (occurrence: BR)
  Receive Date: 20160315
  Receipt Date: 20160315
  Transmission Date: 20160526
  Serious: Yes (Other)
  Sender: FDA-Public Use
  Company Number: BR-ACCORD-038716

PATIENT
  Age: 72 Year
  Sex: Male
  Weight: 56.1 kg

DRUGS (5)
  1. DEXAMETHASONE. [Concomitant]
     Active Substance: DEXAMETHASONE
     Indication: PROPHYLAXIS
     Dosage: S.F. 100ML + DEXAMETHASONE
     Route: 042
     Dates: start: 20160219, end: 20160219
  2. DIPHENHYDRAMINE. [Concomitant]
     Active Substance: DIPHENHYDRAMINE
     Indication: PROPHYLAXIS
     Dosage: S.F. 100ML + DIPHENHYDRAMINE, 1 AMPOULE
     Route: 042
     Dates: start: 20160219, end: 20160219
  3. PACLITAXEL/PACLITAXEL LIPOSOME [Suspect]
     Active Substance: PACLITAXEL
     Indication: OESOPHAGEAL CARCINOMA
     Dosage: 175MG / M2 EVERY 21 DAYS, DAILY DOSE : 300 MG
     Route: 042
     Dates: start: 20160219, end: 20160219
  4. ONDANSETRON [Concomitant]
     Active Substance: ONDANSETRON
     Indication: PROPHYLAXIS
     Route: 042
     Dates: start: 20160219, end: 20160219
  5. RANITIDINE [Concomitant]
     Active Substance: RANITIDINE\RANITIDINE HYDROCHLORIDE
     Indication: PROPHYLAXIS
     Dosage: RANITIDINE 50MG/2ML, 1 AMPOULE
     Route: 042
     Dates: start: 20160219, end: 20160219

REACTIONS (2)
  - Respiratory distress [Recovered/Resolved]
  - Off label use [Unknown]

NARRATIVE: CASE EVENT DATE: 20160219
